FAERS Safety Report 9913399 (Version 2)
Quarter: 2015Q1

REPORT INFORMATION
  Report Type: Report from Study
  Country: US (occurrence: US)
  Receive Date: 20140220
  Receipt Date: 20150213
  Transmission Date: 20150721
  Serious: Yes (Death, Other)
  Sender: FDA-Public Use
  Company Number: US-ASTELLAS-2014US001725

PATIENT
  Sex: Female

DRUGS (7)
  1. GEMCITABINE HYDROCHLORIDE. [Concomitant]
     Active Substance: GEMCITABINE HYDROCHLORIDE
     Indication: PRODUCT USED FOR UNKNOWN INDICATION
     Dosage: UNK UNK, UNKNOWN FREQ.
     Route: 065
  2. AVASTIN [Suspect]
     Active Substance: BEVACIZUMAB
     Indication: NEOPLASM MALIGNANT
     Dosage: 682 MG, IN 100 ML SALINE, 1 IN 2 WKS
     Route: 042
     Dates: start: 20101014
  3. AVASTIN [Suspect]
     Active Substance: BEVACIZUMAB
     Dosage: 682 MG, IN 100 ML SALINE, 1 IN 2 WKS
     Route: 065
     Dates: start: 20101028
  4. ERLOTINIB [Suspect]
     Active Substance: ERLOTINIB
     Indication: PRODUCT USED FOR UNKNOWN INDICATION
     Dosage: 150 MG, QID, 28 DAYS CYCLE
     Route: 048
  5. AVASTIN [Suspect]
     Active Substance: BEVACIZUMAB
     Route: 042
     Dates: start: 20100430
  6. AVASTIN [Suspect]
     Active Substance: BEVACIZUMAB
     Dosage: 682 UNK, UNKNOWN FREQ.
     Route: 042
     Dates: start: 20100130
  7. BENADRYL [Concomitant]
     Active Substance: DIPHENHYDRAMINE HYDROCHLORIDE
     Indication: PRODUCT USED FOR UNKNOWN INDICATION
     Dosage: UNK UNK, UNKNOWN FREQ.
     Route: 065

REACTIONS (13)
  - Weight increased [Unknown]
  - Headache [Recovered/Resolved]
  - Chest pain [Unknown]
  - Malignant neoplasm progression [Unknown]
  - Nausea [Unknown]
  - Inappropriate schedule of drug administration [Unknown]
  - Overdose [Unknown]
  - Blood pressure increased [Unknown]
  - Death [Fatal]
  - Gastrooesophageal reflux disease [Unknown]
  - Poor quality sleep [Recovered/Resolved]
  - Hypoaesthesia [Unknown]
  - Fatigue [Unknown]
